FAERS Safety Report 17082133 (Version 1)
Quarter: 2019Q4

REPORT INFORMATION
  Report Type: Spontaneous
  Country: US (occurrence: US)
  Receive Date: 20191030
  Receipt Date: 20191030
  Transmission Date: 20200122
  Serious: No
  Sender: FDA-Public Use
  Company Number: None

PATIENT
  Age: 37 Year
  Sex: Female
  Weight: 77.11 kg

DRUGS (1)
  1. BUPRENORPHINE\NALOXONE [Suspect]
     Active Substance: BUPRENORPHINE\NALOXONE
     Indication: DRUG DEPENDENCE
     Route: 060
     Dates: start: 20190925, end: 20191030

REACTIONS (4)
  - Maternal exposure during pregnancy [None]
  - Nausea [None]
  - Foetal exposure during pregnancy [None]
  - Vomiting [None]

NARRATIVE: CASE EVENT DATE: 20191030
